FAERS Safety Report 9236502 (Version 2)
Quarter: 2013Q2

REPORT INFORMATION
  Report Type: Report from Study
  Country: FR (occurrence: FR)
  Receive Date: 20130417
  Receipt Date: 20130522
  Transmission Date: 20140414
  Serious: Yes (Other)
  Sender: FDA-Public Use
  Company Number: FR-SANOFI-AVENTIS-2013SA038391

PATIENT
  Age: 59 Year
  Sex: Male
  Weight: 90 kg

DRUGS (10)
  1. CABAZITAXEL [Suspect]
     Indication: PROSTATE CANCER METASTATIC
     Route: 042
     Dates: start: 20121204, end: 20121204
  2. CABAZITAXEL [Suspect]
     Indication: PROSTATE CANCER METASTATIC
     Route: 042
     Dates: start: 20130326, end: 20130326
  3. PREDNISONE [Suspect]
     Indication: PROSTATE CANCER METASTATIC
     Route: 048
     Dates: start: 20121204, end: 20130410
  4. APROVEL [Concomitant]
     Route: 048
     Dates: start: 2009
  5. VELMETIA [Concomitant]
     Route: 048
     Dates: start: 2009
  6. CRESTOR [Concomitant]
     Route: 048
     Dates: start: 2009
  7. EFFEXOR [Concomitant]
     Route: 048
     Dates: start: 2009
  8. PULMICORT [Concomitant]
     Route: 055
     Dates: start: 2008
  9. OTHER RESPIRATORY SYSTEM PRODUCTS [Concomitant]
     Route: 055
     Dates: start: 2008
  10. SPIRIVA [Concomitant]
     Route: 055
     Dates: start: 2008

REACTIONS (1)
  - Pancreatitis acute [Recovered/Resolved]
